FAERS Safety Report 7439630-1 (Version None)
Quarter: 2011Q2

REPORT INFORMATION
  Report Type: 
  Country: None (occurrence: None)
  Receive Date: 20110427
  Receipt Date: 20110413
  Transmission Date: 20111010
  Serious: Yes (Other)
  Sender: FDA-Public Use
  Company Number: US-AMGEN-USASP2010009573

PATIENT
  Age: 52 Year
  Sex: Female

DRUGS (3)
  1. ENBREL [Suspect]
     Indication: RHEUMATOID ARTHRITIS
     Dosage: 50 MG, QWK
     Route: 058
     Dates: start: 20081201
  2. METHOTREXATE [Concomitant]
  3. PLAQUENIL [Concomitant]

REACTIONS (9)
  - MUSCLE SPASMS [None]
  - INSOMNIA [None]
  - MULTIPLE FRACTURES [None]
  - MYALGIA [None]
  - NASOPHARYNGITIS [None]
  - JOINT SWELLING [None]
  - OSTEOPOROSIS [None]
  - ARTHRALGIA [None]
  - MUSCULAR WEAKNESS [None]
